FAERS Safety Report 15547867 (Version 1)
Quarter: 2018Q4

REPORT INFORMATION
  Report Type: Spontaneous
  Country: JP (occurrence: JP)
  Receive Date: 20181024
  Receipt Date: 20181024
  Transmission Date: 20190205
  Serious: Yes (Death, Hospitalization)
  Sender: FDA-Public Use
  Company Number: JP-BAYER-2018-158134

PATIENT
  Age: 77 Year
  Sex: Male
  Weight: 50 kg

DRUGS (4)
  1. XOFIGO [Suspect]
     Active Substance: RADIUM RA-223 DICHLORIDE
     Indication: METASTASES TO BONE
     Dosage: ONCE, 55 KBQ/KG
     Route: 042
     Dates: start: 20180622, end: 20180622
  2. XOFIGO [Suspect]
     Active Substance: RADIUM RA-223 DICHLORIDE
     Indication: METASTASES TO BONE
     Dosage: ONCE, 55 KBQ/KG
     Route: 042
     Dates: start: 20180515, end: 20180515
  3. XOFIGO [Suspect]
     Active Substance: RADIUM RA-223 DICHLORIDE
     Indication: METASTASES TO BONE
     Dosage: ONCE, 55 KBQ/KG
     Route: 042
     Dates: start: 20180302, end: 20180302
  4. XOFIGO [Suspect]
     Active Substance: RADIUM RA-223 DICHLORIDE
     Indication: HORMONE-REFRACTORY PROSTATE CANCER
     Dosage: ONCE, 55 KBQ/KG
     Route: 042
     Dates: start: 20180406, end: 20180406

REACTIONS (6)
  - Hormone-refractory prostate cancer [Fatal]
  - Pneumonia [Fatal]
  - Anaemia [Unknown]
  - Haematuria [Unknown]
  - Platelet count decreased [Unknown]
  - Internal haemorrhage [Unknown]

NARRATIVE: CASE EVENT DATE: 20180725
